FAERS Safety Report 5099469-1 (Version None)
Quarter: 2006Q3

REPORT INFORMATION
  Report Type: 
  Country: None (occurrence: None)
  Receive Date: 20060906
  Receipt Date: 20060825
  Transmission Date: 20061208
  Serious: Yes (Hospitalization, Other)
  Sender: FDA-Public Use
  Company Number: 2006104973

PATIENT
  Age: 66 Year
  Sex: Male

DRUGS (4)
  1. DELTASONE [Suspect]
     Indication: DRUG USE FOR UNKNOWN INDICATION
  2. METHOTREXATE [Suspect]
     Indication: DRUG USE FOR UNKNOWN INDICATION
     Dosage: 20 MG (20 MG,1 IN 1 WK), ORAL
     Route: 048
     Dates: start: 20060427
  3. ENBREL [Suspect]
     Indication: RHEUMATOID ARTHRITIS
     Dosage: 50 MG (50MG,1 IN 1WK), SUBCUTANEOUS
     Route: 058
     Dates: start: 20060415
  4. VICODIN [Concomitant]

REACTIONS (4)
  - CONDITION AGGRAVATED [None]
  - INJURY [None]
  - RHEUMATOID ARTHRITIS [None]
  - THROMBOSIS [None]
